FAERS Safety Report 13233074 (Version 2)
Quarter: 2017Q2

REPORT INFORMATION
  Report Type: Spontaneous
  Country: DE (occurrence: DE)
  Receive Date: 20170215
  Receipt Date: 20170421
  Transmission Date: 20170830
  Serious: Yes (Life-Threatening, Disabling, Other)
  Sender: FDA-Public Use
  Company Number: DE-ROCHE-1892456

PATIENT
  Age: 35 Year
  Sex: Female
  Weight: 60 kg

DRUGS (6)
  1. MABTHERA [Suspect]
     Active Substance: RITUXIMAB
     Indication: DIFFUSE LARGE B-CELL LYMPHOMA
     Dosage: ACCORDING TO R-CHOP 14 REGIMEN
     Route: 042
     Dates: start: 20160817, end: 20161026
  2. VINCRISTIN [Suspect]
     Active Substance: VINCRISTINE
     Indication: DIFFUSE LARGE B-CELL LYMPHOMA
     Dosage: ACCORDING TO R-CHOP 14 REGIMEN
     Route: 065
     Dates: end: 20161026
  3. HYDROXYDAUNORUBICIN [Suspect]
     Active Substance: DOXORUBICIN
     Indication: DIFFUSE LARGE B-CELL LYMPHOMA
     Dosage: ACCORDING TO R-CHOP 14 REGIMEN
     Route: 065
     Dates: end: 20161026
  4. PREDNISOLON [Suspect]
     Active Substance: PREDNISOLONE
     Indication: DIFFUSE LARGE B-CELL LYMPHOMA
     Dosage: ACCORDING TO R-CHOP 14 REGIMEN
     Route: 065
     Dates: end: 20161026
  5. MABTHERA [Suspect]
     Active Substance: RITUXIMAB
     Dosage: AS MONOTHERAPY
     Route: 042
     Dates: start: 20161109, end: 20161123
  6. CYCLOPHOSPHAMID [Suspect]
     Active Substance: CYCLOPHOSPHAMIDE
     Indication: DIFFUSE LARGE B-CELL LYMPHOMA
     Dosage: ACCORDING TO R-CHOP 14 REGIMEN
     Route: 065
     Dates: end: 20161026

REACTIONS (2)
  - Antibody test positive [Unknown]
  - Neutropenia [Not Recovered/Not Resolved]

NARRATIVE: CASE EVENT DATE: 20161130
